FAERS Safety Report 17047158 (Version 2)
Quarter: 2019Q4

REPORT INFORMATION
  Report Type: Spontaneous
  Country: US (occurrence: US)
  Receive Date: 20191119
  Receipt Date: 20191213
  Transmission Date: 20200122
  Serious: Yes (Other)
  Sender: FDA-Public Use
  Company Number: US-IGSA-SR10009419

PATIENT
  Age: 12 Year
  Sex: Male
  Weight: 33 kg

DRUGS (14)
  1. LIDOCAINE                          /00033402/ [Concomitant]
     Active Substance: LIDOCAINE
  2. PRIVIGEN [Concomitant]
     Active Substance: HUMAN IMMUNOGLOBULIN G
  3. IBUPROFEN                          /00109205/ [Concomitant]
     Active Substance: IBUPROFEN
  4. NORMAL SALINE [Concomitant]
     Active Substance: SODIUM CHLORIDE
  5. EPINEPHRINE                        /00003902/ [Concomitant]
     Active Substance: EPINEPHRINE HYDROCHLORIDE
  6. GAMUNEX-C [Suspect]
     Active Substance: HUMAN IMMUNOGLOBULIN G
     Indication: HYPOGAMMAGLOBULINAEMIA
     Dosage: 5 G, Q.3WK.
     Route: 042
     Dates: start: 20191021
  7. BENADRYL [Concomitant]
     Active Substance: DIPHENHYDRAMINE HYDROCHLORIDE
     Indication: PREMEDICATION
  8. GAMUNEX-C [Suspect]
     Active Substance: HUMAN IMMUNOGLOBULIN G
     Dosage: 10 G, Q.3WK.
     Route: 042
     Dates: start: 20191021
  9. TYLENOL [Concomitant]
     Active Substance: ACETAMINOPHEN
     Indication: PREMEDICATION
  10. GAMUNEX-C [Suspect]
     Active Substance: HUMAN IMMUNOGLOBULIN G
     Dosage: 15 G, Q.3WK.
     Route: 042
     Dates: start: 201706
  11. ACETAMINOPHEN. [Concomitant]
     Active Substance: ACETAMINOPHEN
  12. PROCHLORPERAZINE                   /00013302/ [Concomitant]
  13. CYPROHEPTADINE                     /00042702/ [Concomitant]
     Active Substance: CYPROHEPTADINE HYDROCHLORIDE
     Indication: PREMEDICATION
     Dosage: UNK
  14. SODIUM CHLORIDE. [Concomitant]
     Active Substance: SODIUM CHLORIDE

REACTIONS (2)
  - Abdominal pain upper [Recovered/Resolved]
  - Urticaria [Recovered/Resolved]

NARRATIVE: CASE EVENT DATE: 20191021
